FAERS Safety Report 6245617-7 (Version None)
Quarter: 2009Q2

REPORT INFORMATION
  Report Type: 
  Country: None (occurrence: None)
  Receive Date: 20090625
  Receipt Date: 20090617
  Transmission Date: 20091009
  Serious: Yes (Hospitalization)
  Sender: FDA-Public Use
  Company Number: JP-B.I. PHARMACEUTICALS,INC./RIDGEFIELD-2005-BP-21796NB

PATIENT
  Sex: Male

DRUGS (3)
  1. VIRAMUNE [Suspect]
     Indication: HIV INFECTION
     Dosage: 400 MG
     Route: 048
     Dates: start: 19990629, end: 20051004
  2. EPIVIR [Suspect]
     Indication: HIV INFECTION
     Dosage: 300 MG
     Route: 048
     Dates: start: 19990622, end: 20051011
  3. ZIAGEN [Suspect]
     Indication: HIV INFECTION
     Dosage: 600 MG
     Route: 048
     Dates: start: 20040820, end: 20051011

REACTIONS (4)
  - ALANINE AMINOTRANSFERASE INCREASED [None]
  - ASPARTATE AMINOTRANSFERASE INCREASED [None]
  - CARDIAC MURMUR [None]
  - HYPERTENSION [None]
